FAERS Safety Report 16751544 (Version 1)
Quarter: 2019Q3

REPORT INFORMATION
  Report Type: Spontaneous
  Country: US (occurrence: US)
  Receive Date: 20190828
  Receipt Date: 20190828
  Transmission Date: 20191005
  Serious: Yes (Hospitalization)
  Sender: FDA-Public Use
  Company Number: US-ENDO PHARMACEUTICALS INC-2019-102850

PATIENT
  Sex: Male
  Weight: 94.35 kg

DRUGS (2)
  1. PREDNISONE. [Suspect]
     Active Substance: PREDNISONE
     Indication: TENDONITIS
     Dosage: 3 PILLS, DAILY
     Route: 065
     Dates: start: 20180501
  2. PREDNISONE. [Suspect]
     Active Substance: PREDNISONE
     Dosage: UNK UNKNOWN, UNKNOWN
     Route: 065
     Dates: start: 20180605

REACTIONS (4)
  - Decreased appetite [Unknown]
  - Asthenia [Recovering/Resolving]
  - Night sweats [Unknown]
  - Emotional distress [Unknown]
